FAERS Safety Report 4971936-8 (Version None)
Quarter: 2006Q2

REPORT INFORMATION
  Report Type: 
  Country: None (occurrence: None)
  Receive Date: 20060407
  Receipt Date: 20060329
  Transmission Date: 20061013
  Serious: Yes (Other)
  Sender: FDA-Public Use
  Company Number: 2006043770

PATIENT
  Age: 15 Year
  Sex: Female
  Weight: 52.1637 kg

DRUGS (3)
  1. NEURONTIN [Suspect]
     Indication: NERVE INJURY
  2. PARACETAMOL/CAFFEINE (CAFFEINE, PARACETAMOL) [Suspect]
     Indication: HEADACHE
     Dosage: DF (ONCE), ORAL
     Route: 048
     Dates: start: 20060205, end: 20060205
  3. LIDODERM [Concomitant]

REACTIONS (5)
  - DYSPNOEA [None]
  - PRURITUS [None]
  - RASH [None]
  - THROAT TIGHTNESS [None]
  - URTICARIA [None]
